FAERS Safety Report 4951747-X (Version None)
Quarter: 2006Q1

REPORT INFORMATION
  Report Type: 
  Country: None (occurrence: None)
  Receive Date: 20060323
  Receipt Date: 20060315
  Transmission Date: 20060701
  Serious: Yes (Other)
  Sender: FDA-Public Use
  Company Number: GB-GLAXOSMITHKLINE-B0415995A

PATIENT
  Age: 38 Year
  Sex: Female
  Weight: 70 kg

DRUGS (2)
  1. BUPROPION HCL [Suspect]
     Indication: SMOKING CESSATION THERAPY
     Dosage: 150MG PER DAY
     Route: 048
     Dates: start: 20060210, end: 20060303
  2. DIANETTE [Concomitant]
     Indication: CONTRACEPTION
     Route: 048
     Dates: start: 20030101

REACTIONS (4)
  - ARTHRALGIA [None]
  - JOINT STABILISATION [None]
  - SWELLING [None]
  - URTICARIA [None]
